FAERS Safety Report 17389687 (Version 1)
Quarter: 2020Q1

REPORT INFORMATION
  Report Type: Spontaneous
  Country: CH (occurrence: CH)
  Receive Date: 20200207
  Receipt Date: 20200207
  Transmission Date: 20200409
  Serious: Yes (Other)
  Sender: FDA-Public Use
  Company Number: CH-PFIZER INC-2020049633

PATIENT
  Age: 83 Year
  Sex: Male
  Weight: 97 kg

DRUGS (7)
  1. IMOVANE [Suspect]
     Active Substance: ZOPICLONE
     Dosage: 7.5 MG, IN TOTAL
     Route: 048
     Dates: start: 20190925, end: 20190925
  2. CALCIMAGONA D3 [Concomitant]
     Active Substance: CALCIUM CARBONATE\CHOLECALCIFEROL
     Dosage: 500 MG, 1X/DAY
     Route: 048
  3. CREON [Concomitant]
     Active Substance: PANCRELIPASE AMYLASE\PANCRELIPASE LIPASE\PANCRELIPASE PROTEASE
     Dosage: 25000 IU, 1X/DAY
     Route: 048
  4. ESOMEPRAZOLUM [Concomitant]
     Dosage: 40 MG, 1X/DAY
     Route: 048
  5. XARELTO [Concomitant]
     Active Substance: RIVAROXABAN
     Dosage: 15 MG, 1X/DAY
     Route: 048
  6. TEMESTA (LORAZEPAM) [Suspect]
     Active Substance: LORAZEPAM
     Dosage: 0.5 MG, IN TOTAL
     Route: 048
     Dates: start: 20190925, end: 20190925
  7. SOTALOL MEPHA [Concomitant]
     Active Substance: SOTALOL HYDROCHLORIDE
     Dosage: 80 MG, 1X/DAY
     Route: 048

REACTIONS (2)
  - Fall [Recovered/Resolved]
  - Skin laceration [Recovered/Resolved]

NARRATIVE: CASE EVENT DATE: 20190925
